FAERS Safety Report 5408930-9 (Version None)
Quarter: 2007Q3

REPORT INFORMATION
  Report Type: 
  Country: None (occurrence: None)
  Receive Date: 20070713
  Receipt Date: 20070330
  Transmission Date: 20080115
  Serious: Yes (Hospitalization, Other)
  Sender: FDA-Public Use
  Company Number: US-JNJFOC-20060704756

PATIENT
  Age: 31 Year
  Sex: Female
  Weight: 53.5244 kg

DRUGS (2)
  1. ORTHO EVRA [Suspect]
     Indication: CONTRACEPTION
     Dosage: 1 IN 4 MONTH, TRANSDERMAL
     Route: 062
     Dates: start: 20040201, end: 20040701
  2. ANTIVERT [Concomitant]

REACTIONS (3)
  - ARTERY DISSECTION [None]
  - BRAIN STEM INFARCTION [None]
  - MIGRAINE [None]
